FAERS Safety Report 6886095-4 (Version None)
Quarter: 2010Q3

REPORT INFORMATION
  Report Type: 
  Country: None (occurrence: None)
  Receive Date: 20100729
  Receipt Date: 20080415
  Transmission Date: 20110219
  Serious: Yes (Hospitalization)
  Sender: FDA-Public Use
  Company Number: US-PFIZER INC-2008033019

PATIENT
  Age: 57 Year
  Sex: Female

DRUGS (1)
  1. CELEBREX [Suspect]
     Indication: PAIN MANAGEMENT

REACTIONS (1)
  - MYOCARDIAL INFARCTION [None]
